FAERS Safety Report 8514895-3 (Version None)
Quarter: 2012Q3

REPORT INFORMATION
  Report Type: 
  Country: None (occurrence: None)
  Receive Date: 20120717
  Receipt Date: 20120711
  Transmission Date: 20120928
  Serious: No
  Sender: FDA-Public Use
  Company Number: US-PFIZER INC-2012167066

PATIENT
  Sex: Male
  Weight: 90.703 kg

DRUGS (2)
  1. VIAGRA [Suspect]
     Indication: SEXUAL DYSFUNCTION
     Dosage: 50 MG, AS NEEDED
     Route: 048
  2. VIAGRA [Suspect]
     Dosage: 25 MG, AS NEEDED
     Route: 048

REACTIONS (2)
  - HEART RATE INCREASED [None]
  - NASAL CONGESTION [None]
